FAERS Safety Report 7429558-5 (Version None)
Quarter: 2011Q2

REPORT INFORMATION
  Report Type: 
  Country: None (occurrence: None)
  Receive Date: 20110421
  Receipt Date: 20110413
  Transmission Date: 20111010
  Serious: Yes (Death)
  Sender: FDA-Public Use
  Company Number: A0908823A

PATIENT
  Age: 71 Year
  Sex: Male

DRUGS (1)
  1. VOTRIENT [Suspect]
     Dosage: 200MG UNKNOWN
     Route: 048
     Dates: start: 20101109

REACTIONS (2)
  - DEPRESSED LEVEL OF CONSCIOUSNESS [None]
  - RENAL CANCER METASTATIC [None]
